FAERS Safety Report 17001533 (Version 1)
Quarter: 2019Q4

REPORT INFORMATION
  Report Type: Spontaneous
  Country: US (occurrence: US)
  Receive Date: 20191106
  Receipt Date: 20191106
  Transmission Date: 20200122
  Serious: Yes (Other)
  Sender: FDA-Public Use
  Company Number: US-PFIZER INC-2019479098

PATIENT
  Age: 51 Year
  Sex: Female

DRUGS (1)
  1. XELJANZ XR [Suspect]
     Active Substance: TOFACITINIB CITRATE
     Dosage: 11 MG, UNK
     Dates: start: 20191001, end: 20191025

REACTIONS (6)
  - Abdominal pain upper [Recovering/Resolving]
  - Depression [Recovering/Resolving]
  - Rheumatoid arthritis [Unknown]
  - Stomatitis [Unknown]
  - Mood altered [Unknown]
  - Headache [Unknown]

NARRATIVE: CASE EVENT DATE: 201910
